FAERS Safety Report 4994311-9 (Version None)
Quarter: 2006Q2

REPORT INFORMATION
  Report Type: 
  Country: None (occurrence: None)
  Receive Date: 20060503
  Receipt Date: 20060412
  Transmission Date: 20061013
  Serious: Yes (Hospitalization, Other)
  Sender: FDA-Public Use
  Company Number: CA200604004442

PATIENT
  Sex: Female

DRUGS (1)
  1. HUMAN INSULIN            (RDNA) [Suspect]

REACTIONS (2)
  - HYPERSENSITIVITY [None]
  - MALAISE [None]
